FAERS Safety Report 17114606 (Version 1)
Quarter: 2019Q4

REPORT INFORMATION
  Report Type: Spontaneous
  Country: TN (occurrence: TN)
  Receive Date: 20191205
  Receipt Date: 20191205
  Transmission Date: 20200122
  Serious: Yes (Other)
  Sender: FDA-Public Use
  Company Number: TN-NVP-000001

PATIENT
  Age: 36 Year

DRUGS (1)
  1. DAPSONE. [Suspect]
     Active Substance: DAPSONE
     Indication: PEMPHIGUS
     Route: 065

REACTIONS (4)
  - Pemphigus [Unknown]
  - Drug effective for unapproved indication [Unknown]
  - Condition aggravated [Unknown]
  - Therapy cessation [Unknown]
